FAERS Safety Report 19001529 (Version 1)
Quarter: 2021Q1

REPORT INFORMATION
  Report Type: Spontaneous
  Country: US (occurrence: US)
  Receive Date: 20210311
  Receipt Date: 20210311
  Transmission Date: 20210420
  Serious: Yes (Hospitalization)
  Sender: FDA-Public Use
  Company Number: None

PATIENT
  Age: 78 Year
  Sex: Female
  Weight: 101.25 kg

DRUGS (13)
  1. PREDNISONE 2.5 MG [Concomitant]
     Active Substance: PREDNISONE
  2. TIVICAY [Concomitant]
     Active Substance: DOLUTEGRAVIR SODIUM
  3. TRELEGY ELLIPTA 100?62.5?25 MCG [Concomitant]
  4. ALBUTEROL. [Concomitant]
     Active Substance: ALBUTEROL
  5. FLUTICASONE PROPIONATE 220 MCG/ACTUATION [Concomitant]
  6. GABAPENTIN 300 MG [Concomitant]
     Active Substance: GABAPENTIN
  7. ASPIRIN 81 MG [Concomitant]
     Active Substance: ASPIRIN
  8. DESCOVY [Suspect]
     Active Substance: EMTRICITABINE\TENOFOVIR ALAFENAMIDE FUMARATE
     Indication: HIV INFECTION
     Route: 048
  9. FUROSEMIDE 40 MG [Concomitant]
     Active Substance: FUROSEMIDE
  10. OXYCODONE 5 MG IR [Concomitant]
  11. PANTOPRAZOLE 40 MG [Concomitant]
     Active Substance: PANTOPRAZOLE SODIUM
  12. LOSARTAN. [Suspect]
     Active Substance: LOSARTAN
     Indication: HYPERTENSION
     Route: 048
  13. DOCUSATE SODIUM 100 MG [Concomitant]

REACTIONS (3)
  - Impaired healing [None]
  - Gastrointestinal haemorrhage [None]
  - Large intestinal obstruction [None]

NARRATIVE: CASE EVENT DATE: 20210117
